FAERS Safety Report 16146083 (Version 1)
Quarter: 2019Q2

REPORT INFORMATION
  Report Type: Report from Study
  Country: IT (occurrence: IT)
  Receive Date: 20190402
  Receipt Date: 20190402
  Transmission Date: 20190711
  Serious: Yes (Hospitalization)
  Sender: FDA-Public Use
  Company Number: IT-ACCORD-117528

PATIENT
  Age: 53 Year
  Sex: Male

DRUGS (2)
  1. SERTRALINE [Suspect]
     Active Substance: SERTRALINE HYDROCHLORIDE
     Route: 048
     Dates: start: 20190118, end: 20190118
  2. DELORAZEPAM [Suspect]
     Active Substance: DELORAZEPAM
     Route: 048
     Dates: start: 20190118, end: 20190118

REACTIONS (3)
  - Sopor [Recovering/Resolving]
  - Intentional self-injury [Unknown]
  - Drug abuse [Unknown]

NARRATIVE: CASE EVENT DATE: 20190118
